FAERS Safety Report 4655888-6 (Version None)
Quarter: 2005Q2

REPORT INFORMATION
  Report Type: 
  Country: None (occurrence: None)
  Receive Date: 20050505
  Receipt Date: 20050419
  Transmission Date: 20051028
  Serious: Yes (Hospitalization, Other)
  Sender: FDA-Public Use
  Company Number: JP_050406393

PATIENT
  Age: 56 Year
  Sex: Male

DRUGS (8)
  1. ONCOVIN [Suspect]
     Indication: CENTRAL NERVOUS SYSTEM LYMPHOMA
     Dates: start: 20020901, end: 20021201
  2. CYCLOPHOSPHAMIDE [Concomitant]
  3. ADRIAMYCIN PFS [Concomitant]
  4. PREDNISOLONE [Concomitant]
  5. CARMUSTINE [Concomitant]
  6. METHOTREXATE [Concomitant]
  7. CYTARABINE [Concomitant]
  8. MANIDIPINE HYDROCHLORIDE [Concomitant]

REACTIONS (9)
  - ANTIMITOCHONDRIAL ANTIBODY POSITIVE [None]
  - BILIARY CIRRHOSIS PRIMARY [None]
  - BLOOD COPPER INCREASED [None]
  - BLOOD IMMUNOGLOBULIN A INCREASED [None]
  - BLOOD IMMUNOGLOBULIN M INCREASED [None]
  - HEPATITIS CHRONIC ACTIVE [None]
  - HEPATOCELLULAR DAMAGE [None]
  - HYALURONIC ACID INCREASED [None]
  - NORMOCHROMIC NORMOCYTIC ANAEMIA [None]
